FAERS Safety Report 14188388 (Version 1)
Quarter: 2017Q4

REPORT INFORMATION
  Report Type: Spontaneous
  Country: US (occurrence: US)
  Receive Date: 20171114
  Receipt Date: 20171114
  Transmission Date: 20180321
  Serious: No
  Sender: FDA-Public Use
  Company Number: US-BAUSCH-BL-2017-023236

PATIENT
  Age: 59 Year
  Sex: Male
  Weight: 73.55 kg

DRUGS (4)
  1. ADVANCED EYE RELIEF/EYE WASH [Concomitant]
     Active Substance: WATER
     Indication: SEASONAL ALLERGY
     Dosage: USED IN THE MORNING WHEN HE WAKES UP
     Route: 047
     Dates: start: 2011
  2. OPCON-A [Suspect]
     Active Substance: NAPHAZOLINE HYDROCHLORIDE\PHENIRAMINE MALEATE
     Indication: OCULAR HYPERAEMIA
     Route: 047
     Dates: start: 2002
  3. OPCON-A [Suspect]
     Active Substance: NAPHAZOLINE HYDROCHLORIDE\PHENIRAMINE MALEATE
     Route: 047
  4. ARTIFICIAL TEARS [Concomitant]
     Active Substance: GLYCERIN\HYPROMELLOSES\POLYETHYLENE GLYCOL 400
     Indication: DRY EYE
     Dosage: ONE DROP IN EACH EYE AS NEEDED
     Route: 047
     Dates: start: 2007

REACTIONS (2)
  - Eye irritation [Unknown]
  - Drug effect incomplete [Not Recovered/Not Resolved]

NARRATIVE: CASE EVENT DATE: 2016
